FAERS Safety Report 6342787-7 (Version None)
Quarter: 2009Q3

REPORT INFORMATION
  Report Type: 
  Country: None (occurrence: None)
  Receive Date: 20090908
  Receipt Date: 20000113
  Transmission Date: 20100115
  Serious: No
  Sender: FDA-Public Use
  Company Number: US-ROCHE-96188

PATIENT
  Sex: Female
  Weight: 60.8 kg

DRUGS (1)
  1. GS4104 [Suspect]
     Route: 048
     Dates: start: 19980113, end: 19980224

REACTIONS (3)
  - ABORTION INDUCED [None]
  - DRUG EXPOSURE DURING PREGNANCY [None]
  - PREGNANCY [None]
